FAERS Safety Report 5011414-3 (Version None)
Quarter: 2006Q2

REPORT INFORMATION
  Report Type: 
  Country: None (occurrence: None)
  Receive Date: 20060404
  Receipt Date: 20051104
  Transmission Date: 20061013
  Serious: No
  Sender: FDA-Public Use
  Company Number: USA0511112835

PATIENT
  Sex: Female

DRUGS (3)
  1. CYMBALTA [Suspect]
     Dosage: 60 MG, DAILY (1/D)
     Dates: start: 20051028
  2. AMBIEN [Concomitant]
  3. MELATONIN (MELATONIN) [Concomitant]

REACTIONS (6)
  - DRUG INEFFECTIVE [None]
  - INFLUENZA LIKE ILLNESS [None]
  - MOVEMENT DISORDER [None]
  - NERVOUSNESS [None]
  - SOMNOLENCE [None]
  - STOMACH DISCOMFORT [None]
